FAERS Safety Report 21525335 (Version 1)
Quarter: 2022Q4

REPORT INFORMATION
  Report Type: Spontaneous
  Country: PT (occurrence: PT)
  Receive Date: 20221030
  Receipt Date: 20221030
  Transmission Date: 20230113
  Serious: Yes (Other)
  Sender: FDA-Public Use
  Company Number: PT-NOVARTISPH-NVSC2022PT240134

PATIENT
  Age: 67 Year
  Sex: Male

DRUGS (12)
  1. PEMETREXED [Suspect]
     Active Substance: PEMETREXED
     Indication: Metastatic neoplasm
     Dosage: UNK
     Route: 065
     Dates: start: 20220114
  2. PEMETREXED [Suspect]
     Active Substance: PEMETREXED
     Dosage: UNK UNK, Q3W
     Route: 065
     Dates: start: 20220408
  3. PEMBROLIZUMAB [Suspect]
     Active Substance: PEMBROLIZUMAB
     Indication: Brain cancer metastatic
     Dosage: UNK
     Route: 065
     Dates: start: 20220114
  4. PEMBROLIZUMAB [Suspect]
     Active Substance: PEMBROLIZUMAB
     Dosage: UNK, Q3W
     Route: 065
     Dates: start: 20220408
  5. CARBOPLATIN [Suspect]
     Active Substance: CARBOPLATIN
     Indication: Metastatic neoplasm
     Dosage: UNK
     Route: 065
     Dates: start: 20220114
  6. PANTOPRAZOLE [Concomitant]
     Active Substance: PANTOPRAZOLE
     Indication: Product used for unknown indication
     Dosage: UNK
     Route: 065
  7. METFORMIN HYDROCHLORIDE\VILDAGLIPTIN [Concomitant]
     Active Substance: METFORMIN HYDROCHLORIDE\VILDAGLIPTIN
     Indication: Product used for unknown indication
     Dosage: UNK
     Route: 065
  8. DAPAGLIFLOZIN [Concomitant]
     Active Substance: DAPAGLIFLOZIN
     Indication: Product used for unknown indication
     Dosage: UNK
     Route: 065
  9. BISOPROLOL [Concomitant]
     Active Substance: BISOPROLOL
     Indication: Product used for unknown indication
     Dosage: UNK
     Route: 065
  10. DILTIAZEM [Concomitant]
     Active Substance: DILTIAZEM
     Indication: Product used for unknown indication
     Dosage: UNK
     Route: 065
  11. ATORVASTATIN [Concomitant]
     Active Substance: ATORVASTATIN
     Indication: Product used for unknown indication
     Dosage: UNK
     Route: 065
  12. DIAZEPAM [Concomitant]
     Active Substance: DIAZEPAM
     Indication: Product used for unknown indication
     Dosage: UNK
     Route: 065

REACTIONS (15)
  - Nephrolithiasis [Unknown]
  - Haemothorax [Unknown]
  - Pericardial effusion [Unknown]
  - Malignant neoplasm progression [Unknown]
  - Pleural thickening [Unknown]
  - Gallbladder disorder [Unknown]
  - Pleural calcification [Unknown]
  - Fatigue [Unknown]
  - Vocal cord paresis [Unknown]
  - Dysphonia [Recovering/Resolving]
  - Asthenia [Recovering/Resolving]
  - COVID-19 [Unknown]
  - Blood glucose increased [Unknown]
  - Product use in unapproved indication [Unknown]
  - Therapy partial responder [Unknown]

NARRATIVE: CASE EVENT DATE: 20220828
